FAERS Safety Report 16462176 (Version 1)
Quarter: 2019Q2

REPORT INFORMATION
  Report Type: Spontaneous
  Country: DE (occurrence: DE)
  Receive Date: 20190621
  Receipt Date: 20190621
  Transmission Date: 20190711
  Serious: Yes (Other)
  Sender: FDA-Public Use
  Company Number: PHHY2019DE139251

PATIENT
  Age: 78 Year
  Sex: Female
  Weight: 60 kg

DRUGS (6)
  1. L-THYROXINE [Concomitant]
     Active Substance: LEVOTHYROXINE
     Indication: THYROIDECTOMY
     Dosage: 75 UG, QD
     Route: 065
     Dates: start: 201204
  2. IBRANCE [Suspect]
     Active Substance: PALBOCICLIB
     Indication: BREAST CANCER METASTATIC
     Dosage: 125 OT, QD
     Route: 048
     Dates: start: 20180414
  3. FULVESTRANT. [Suspect]
     Active Substance: FULVESTRANT
     Indication: BREAST CANCER METASTATIC
     Dosage: UNK UNK, CYCLIC(EVERY 4 WEEKS)
     Route: 030
     Dates: start: 20180416
  4. CITALOPRAM [Concomitant]
     Active Substance: CITALOPRAM HYDROBROMIDE
     Indication: ADJUSTMENT DISORDER
     Dosage: 10 MG, QD
     Route: 065
     Dates: start: 2017
  5. AVASTIN [Concomitant]
     Active Substance: BEVACIZUMAB
     Indication: PRODUCT USED FOR UNKNOWN INDICATION
  6. IBANDRONSAEURE AL [Concomitant]
     Indication: OSTEOPOROSIS
     Dosage: 3 MG, QD
     Route: 042
     Dates: start: 201703

REACTIONS (9)
  - Pigmentation disorder [Not Recovered/Not Resolved]
  - Lacrimation increased [Not Recovered/Not Resolved]
  - Rhinitis [Not Recovered/Not Resolved]
  - Sensory disturbance [Unknown]
  - Onychoclasis [Not Recovered/Not Resolved]
  - Hypoaesthesia [Unknown]
  - Polyneuropathy [Unknown]
  - Dry skin [Not Recovered/Not Resolved]
  - Madarosis [Not Recovered/Not Resolved]

NARRATIVE: CASE EVENT DATE: 201805
